FAERS Safety Report 8378242 (Version 7)
Quarter: 2014Q1

REPORT INFORMATION
  Report Type: Spontaneous
  Country: BE (occurrence: BE)
  Receive Date: 20120131
  Receipt Date: 20140213
  Transmission Date: 20141002
  Serious: Yes (Death, Hospitalization, Other)
  Sender: FDA-Public Use
  Company Number: BE-MILLENNIUM PHARMACEUTICALS, INC.-2012-00449

PATIENT
  Sex: 0

DRUGS (4)
  1. VELCADE [Suspect]
     Indication: PLASMA CELL MYELOMA
     Dosage: 1.3 MG/M2, UNK
     Route: 065
     Dates: start: 20110819, end: 20111006
  2. VELCADE [Suspect]
     Indication: PLASMACYTOMA
  3. DEXAMETHASONE [Suspect]
     Indication: PLASMA CELL MYELOMA
     Dosage: 20 MG, UNK
     Route: 065
     Dates: start: 20110819, end: 20111006
  4. DEXAMETHASONE [Suspect]
     Indication: PLASMACYTOMA

REACTIONS (2)
  - Progressive multifocal leukoencephalopathy [Fatal]
  - Asthenia [Unknown]
